FAERS Safety Report 21590518 (Version 3)
Quarter: 2022Q4

REPORT INFORMATION
  Report Type: Report from Study
  Country: IT (occurrence: IT)
  Receive Date: 20221114
  Receipt Date: 20221117
  Transmission Date: 20230112
  Serious: Yes (Other)
  Sender: FDA-Public Use
  Company Number: None

PATIENT
  Age: 82 Year
  Sex: Female
  Weight: 75 kg

DRUGS (9)
  1. ZIRABEV [Interacting]
     Active Substance: BEVACIZUMAB-BVZR
     Indication: Hepatocellular carcinoma
     Dosage: FREQ:21 D;TERAPIA SECONDO SCHEMA TERAPEUTICO BEVACIZUMAB 15MG/KG G1 E ATEZOLIZUMAB 1200MG G1 Q21
     Dates: start: 20220530, end: 20220620
  2. ZIRABEV [Interacting]
     Active Substance: BEVACIZUMAB-BVZR
     Dosage: FREQ:21 D;TERAPIA SECONDO SCHEMA TERAPEUTICO BEVACIZUMAB 15MG/KG G1 E ATEZOLIZUMAB 1200MG G1 Q21
     Dates: start: 20220530, end: 20220620
  3. TECENTRIQ [Interacting]
     Active Substance: ATEZOLIZUMAB
     Indication: Hepatocellular carcinoma
     Dosage: FREQ:21 D;1200MG OGNI 21 GIORNI
     Route: 042
     Dates: start: 20220530, end: 20220620
  4. LEVOTHYROXINE SODIUM [Concomitant]
     Active Substance: LEVOTHYROXINE SODIUM
     Indication: Hypothyroidism
     Dosage: 75 UG
     Route: 048
  5. HYDROCHLOROTHIAZIDE\LOSARTAN POTASSIUM [Concomitant]
     Active Substance: HYDROCHLOROTHIAZIDE\LOSARTAN POTASSIUM
     Indication: Hypertension
     Dosage: UNK
  6. ASPIRIN [Concomitant]
     Active Substance: ASPIRIN
     Indication: Transient ischaemic attack
     Dosage: 100 MG
     Route: 048
  7. METFORMIN [Concomitant]
     Active Substance: METFORMIN HYDROCHLORIDE
     Indication: Diabetes mellitus
     Dosage: UNK
  8. TRIAZOLAM [Concomitant]
     Active Substance: TRIAZOLAM
     Dosage: 0.375 MG 6 GOCCE
     Route: 048
  9. BISOPROLOL [Concomitant]
     Active Substance: BISOPROLOL
     Dosage: 1.25 MG

REACTIONS (3)
  - Hyponatraemia [Recovering/Resolving]
  - Drug interaction [Unknown]
  - Off label use [Unknown]

NARRATIVE: CASE EVENT DATE: 20220530
